FAERS Safety Report 5955095-0 (Version None)
Quarter: 2008Q4

REPORT INFORMATION
  Report Type: 
  Country: None (occurrence: None)
  Receive Date: 20081112
  Receipt Date: 20081104
  Transmission Date: 20090506
  Serious: Yes (Death)
  Sender: FDA-Public Use
  Company Number: 230096M08GBR

PATIENT
  Age: 60 Year
  Sex: Female

DRUGS (2)
  1. REBIF [Suspect]
     Indication: RELAPSING-REMITTING MULTIPLE SCLEROSIS
     Dosage: 44 MCG, 3 IN 1 WEEKS
     Dates: start: 20040219, end: 20050921
  2. AMITRIPTYLINE HCL [Concomitant]

REACTIONS (3)
  - CHANGE OF BOWEL HABIT [None]
  - DIVERTICULUM [None]
  - RECTAL HAEMORRHAGE [None]
